FAERS Safety Report 24118041 (Version 1)
Quarter: 2024Q3

REPORT INFORMATION
  Report Type: Spontaneous
  Country: JP (occurrence: JP)
  Receive Date: 20240722
  Receipt Date: 20240722
  Transmission Date: 20241017
  Serious: No
  Sender: Waylis
  Company Number: JP-WT-2024-073007

PATIENT
  Age: 91 Year
  Sex: Male

DRUGS (2)
  1. DUTASTERIDE [Suspect]
     Active Substance: DUTASTERIDE
     Dosage: 1 MG, QD
     Route: 065
  2. SILODOSIN [Concomitant]
     Active Substance: SILODOSIN
     Route: 065

REACTIONS (2)
  - Inappropriate schedule of product administration [Unknown]
  - Accidental overdose [Unknown]
